FAERS Safety Report 9037261 (Version 1)
Quarter: 2013Q1

REPORT INFORMATION
  Report Type: Spontaneous
  Country: US (occurrence: US)
  Receive Date: 20130129
  Receipt Date: 20130129
  Transmission Date: 20140127
  Serious: Yes (Hospitalization)
  Sender: FDA-Public Use
  Company Number: US-BIOGENIDEC-2013BI008185

PATIENT
  Age: 52 Year
  Sex: Female

DRUGS (1)
  1. TYSABRI [Suspect]
     Indication: MULTIPLE SCLEROSIS
     Route: 042
     Dates: start: 20120404

REACTIONS (4)
  - Syncope [Not Recovered/Not Resolved]
  - Musculoskeletal disorder [Recovered/Resolved]
  - Loss of control of legs [Recovered/Resolved]
  - Dyspnoea [Recovered/Resolved]
